FAERS Safety Report 5743213-9 (Version None)
Quarter: 2008Q2

REPORT INFORMATION
  Report Type: 
  Country: None (occurrence: None)
  Receive Date: 20080519
  Receipt Date: 20080516
  Transmission Date: 20081010
  Serious: Yes (Hospitalization)
  Sender: FDA-Public Use
  Company Number: JP-BOEHRINGER INGELHEIM GMBH, GERMANY-2008-BP-06738NB

PATIENT
  Sex: Male
  Weight: 46 kg

DRUGS (13)
  1. SPIRIVA [Suspect]
     Indication: EMPHYSEMA
     Route: 055
     Dates: start: 20070330
  2. SUNRYTHM [Suspect]
     Indication: ARRHYTHMIA SUPRAVENTRICULAR
     Route: 048
     Dates: end: 20080228
  3. SULTANOL [Concomitant]
     Indication: CHRONIC OBSTRUCTIVE PULMONARY DISEASE
     Route: 055
     Dates: start: 20060714
  4. MUCODYNE [Concomitant]
     Indication: CHRONIC OBSTRUCTIVE PULMONARY DISEASE
     Route: 048
     Dates: start: 20060519
  5. MYSLEE [Concomitant]
     Indication: INSOMNIA
     Route: 048
  6. MICARDIS [Concomitant]
     Indication: HYPERTENSION
     Route: 048
  7. SELBEX [Concomitant]
     Indication: GASTRITIS
     Route: 048
  8. CARDENALIN [Concomitant]
     Indication: HYPERTENSION
     Route: 048
  9. NORVASC [Concomitant]
     Indication: HYPERTENSION
     Route: 048
  10. TAGAMET [Concomitant]
     Indication: GASTRITIS
     Route: 048
     Dates: end: 20080228
  11. NOZLEN [Concomitant]
     Indication: GASTRITIS
     Route: 048
     Dates: end: 20080228
  12. ANPLAG [Concomitant]
     Indication: ARRHYTHMIA
     Route: 048
     Dates: end: 20080307
  13. ENTERONON [Concomitant]
     Indication: GASTRITIS
     Route: 048
     Dates: end: 20080228

REACTIONS (5)
  - BRADYARRHYTHMIA [None]
  - CHRONIC OBSTRUCTIVE PULMONARY DISEASE [None]
  - LOSS OF CONSCIOUSNESS [None]
  - UPPER RESPIRATORY TRACT INFECTION [None]
  - VENTRICULAR EXTRASYSTOLES [None]
